FAERS Safety Report 8053941-0 (Version None)
Quarter: 2012Q1

REPORT INFORMATION
  Report Type: 
  Country: None (occurrence: None)
  Receive Date: 20120118
  Receipt Date: 20120111
  Transmission Date: 20120608
  Serious: Yes (Hospitalization)
  Sender: FDA-Public Use
  Company Number: KR-ABBOTT-12P-090-0892400-00

PATIENT
  Sex: Female
  Weight: 66.8 kg

DRUGS (10)
  1. ZEMPLAR [Suspect]
     Indication: HYPERPARATHYROIDISM
     Route: 042
     Dates: start: 20090401, end: 20090527
  2. CACO3 [Concomitant]
     Indication: HYPERPHOSPHATAEMIA
     Route: 048
     Dates: start: 20090102, end: 20090225
  3. ZEMPLAR [Suspect]
     Route: 042
     Dates: start: 20090624, end: 20090729
  4. RENAGEL [Concomitant]
     Route: 048
     Dates: start: 20090422, end: 20090624
  5. RENAGEL [Concomitant]
     Route: 048
     Dates: start: 20090729, end: 20091123
  6. FOSRENOL [Concomitant]
     Indication: HYPERPHOSPHATAEMIA
     Route: 048
     Dates: start: 20090102, end: 20090225
  7. RENAGEL [Concomitant]
     Indication: HYPERPHOSPHATAEMIA
     Route: 048
     Dates: start: 20090225, end: 20090422
  8. RENAGEL [Concomitant]
     Route: 048
     Dates: start: 20091123, end: 20100618
  9. FOSRENOL [Concomitant]
     Route: 048
     Dates: start: 20090624, end: 20091123
  10. FOSRENOL [Concomitant]
     Route: 048
     Dates: start: 20091123, end: 20100519

REACTIONS (2)
  - ARTERIOVENOUS FISTULA SITE COMPLICATION [None]
  - CATARACT [None]
